FAERS Safety Report 16016102 (Version 1)
Quarter: 2019Q1

REPORT INFORMATION
  Report Type: Report from Study
  Country: NL (occurrence: NL)
  Receive Date: 20190228
  Receipt Date: 20190228
  Transmission Date: 20190418
  Serious: Yes (Hospitalization, Other)
  Sender: FDA-Public Use
  Company Number: NL-BRISTOL-MYERS SQUIBB COMPANY-BMS-2019-019356

PATIENT
  Age: 22 Year
  Sex: Male

DRUGS (2)
  1. IPILIMUMAB [Suspect]
     Active Substance: IPILIMUMAB
     Indication: COLORECTAL CANCER
     Dosage: 1 MG/KG, UNK
     Route: 042
     Dates: start: 20190109, end: 20190109
  2. NIVOLUMAB [Suspect]
     Active Substance: NIVOLUMAB
     Indication: COLORECTAL CANCER
     Dosage: 3 MG/KG, UNK
     Route: 042
     Dates: start: 20190109, end: 20190109

REACTIONS (1)
  - Gastrointestinal anastomotic leak [Recovering/Resolving]

NARRATIVE: CASE EVENT DATE: 20190222
